FAERS Safety Report 17841444 (Version 1)
Quarter: 2020Q2

REPORT INFORMATION
  Report Type: Spontaneous
  Country: FR (occurrence: FR)
  Receive Date: 20200529
  Receipt Date: 20200529
  Transmission Date: 20200714
  Serious: Yes (Other)
  Sender: FDA-Public Use
  Company Number: NVSC2020FR148283

PATIENT
  Age: 37 Year
  Sex: Female

DRUGS (2)
  1. PARACETAMOL [Concomitant]
     Active Substance: ACETAMINOPHEN
     Indication: LARYNGITIS
     Dosage: UNK
     Route: 048
     Dates: start: 20191208, end: 20191208
  2. AMOXICILLINE [Suspect]
     Active Substance: AMOXICILLIN
     Indication: LARYNGITIS
     Dosage: UNK
     Route: 048
     Dates: start: 20191208, end: 20191208

REACTIONS (5)
  - Urticaria [Recovered/Resolved]
  - Malaise [Recovered/Resolved]
  - Diarrhoea [Recovered/Resolved]
  - Loss of consciousness [Recovered/Resolved]
  - Anaphylactic reaction [Recovered/Resolved]

NARRATIVE: CASE EVENT DATE: 20191208
